FAERS Safety Report 14638880 (Version 1)
Quarter: 2018Q1

REPORT INFORMATION
  Report Type: Spontaneous
  Country: DE (occurrence: DE)
  Receive Date: 20180315
  Receipt Date: 20180315
  Transmission Date: 20180509
  Serious: Yes (Disabling, Other)
  Sender: FDA-Public Use
  Company Number: DE-CIPLA LTD.-2018DE10834

PATIENT

DRUGS (1)
  1. LEVOFLOXACIN. [Suspect]
     Active Substance: LEVOFLOXACIN
     Indication: CYSTITIS NONINFECTIVE
     Dosage: 500 MG, PER DAY DAILY DOSE: 500 MG M ILLIGRAM( S) EVERY DAY
     Route: 048
     Dates: start: 20140430

REACTIONS (4)
  - Impaired quality of life [Not Recovered/Not Resolved]
  - Tendon pain [Not Recovered/Not Resolved]
  - Visual impairment [Not Recovered/Not Resolved]
  - Balance disorder [Not Recovered/Not Resolved]

NARRATIVE: CASE EVENT DATE: 20140504
